FAERS Safety Report 23309352 (Version 2)
Quarter: 2024Q1

REPORT INFORMATION
  Report Type: Spontaneous
  Country: US (occurrence: US)
  Receive Date: 20231218
  Receipt Date: 20240306
  Transmission Date: 20240410
  Serious: No
  Sender: FDA-Public Use
  Company Number: US-BRISTOL-MYERS SQUIBB COMPANY-2023-183146

PATIENT
  Age: 65 Year
  Sex: Female
  Weight: 81.19 kg

DRUGS (1)
  1. POMALYST [Suspect]
     Active Substance: POMALIDOMIDE
     Indication: Plasma cell myeloma
     Route: 048
     Dates: start: 20230712

REACTIONS (6)
  - Urticaria [Recovering/Resolving]
  - Rash pruritic [Recovering/Resolving]
  - Product dose omission issue [Unknown]
  - Abdominal discomfort [Recovering/Resolving]
  - Disturbance in attention [Recovering/Resolving]
  - Muscle spasms [Recovering/Resolving]
